FAERS Safety Report 15321666 (Version 1)
Quarter: 2018Q3

REPORT INFORMATION
  Report Type: Spontaneous
  Country: US (occurrence: US)
  Receive Date: 20180827
  Receipt Date: 20180827
  Transmission Date: 20181010
  Serious: No
  Sender: FDA-Public Use
  Company Number: US-SUNOVION-2018SUN003310

PATIENT
  Sex: Female

DRUGS (2)
  1. LEXAPRO [Concomitant]
     Active Substance: ESCITALOPRAM OXALATE
     Dosage: UNKNOWN
     Route: 065
  2. LATUDA [Suspect]
     Active Substance: LURASIDONE HYDROCHLORIDE
     Indication: BIPOLAR II DISORDER
     Dosage: BEFORE SHE GOES TO BED
     Route: 048
     Dates: start: 201802

REACTIONS (5)
  - Drug administration error [Unknown]
  - Fatigue [Unknown]
  - Off label use [Unknown]
  - Pollakiuria [Unknown]
  - Pain [Unknown]
